FAERS Safety Report 10185650 (Version 1)
Quarter: 2014Q2

REPORT INFORMATION
  Report Type: Spontaneous
  Country: US (occurrence: None)
  Receive Date: 20140520
  Receipt Date: 20140520
  Transmission Date: 20141212
  Serious: Yes (Hospitalization)
  Sender: FDA-Public Use
  Company Number: None

PATIENT
  Age: 51 Year
  Sex: Female
  Weight: 68.6 kg

DRUGS (2)
  1. TEMODAR [Suspect]
     Indication: PANCREATIC NEUROENDOCRINE TUMOUR
     Dosage: 270MG POX5D Q28 DAYS?(LAST) 5-1 TO 5/5/14
     Route: 048
     Dates: start: 20140501, end: 20140505
  2. METHOXYAMINE [Suspect]
     Dosage: 267MG IV Q 28 DAYS ?(LAST DOSE) 5/1/14
     Route: 042
     Dates: end: 20140501

REACTIONS (3)
  - Chest pain [None]
  - Nausea [None]
  - Vomiting [None]
